FAERS Safety Report 21263180 (Version 4)
Quarter: 2023Q2

REPORT INFORMATION
  Report Type: Other
  Country: CA (occurrence: CA)
  Receive Date: 20220828
  Receipt Date: 20230523
  Transmission Date: 20230721
  Serious: Yes (Hospitalization, Other)
  Sender: FDA-Public Use
  Company Number: CA-TOLMAR, INC.-22CA036272

PATIENT
  Age: 75 Year
  Sex: Male

DRUGS (5)
  1. ELIGARD [Suspect]
     Active Substance: LEUPROLIDE ACETATE
     Indication: Prostate cancer
     Dosage: 22.5 MILLIGRAM, Q 3 MONTH
     Route: 058
     Dates: start: 20220819
  2. ELIGARD [Suspect]
     Active Substance: LEUPROLIDE ACETATE
     Dosage: 22.5 MILLIGRAM, Q 3 MONTH
     Route: 058
     Dates: start: 20221111
  3. ELIGARD [Suspect]
     Active Substance: LEUPROLIDE ACETATE
     Dosage: 22.5 MILLIGRAM, Q 3 MONTH
     Route: 058
     Dates: start: 20230203
  4. ELIGARD [Suspect]
     Active Substance: LEUPROLIDE ACETATE
     Dosage: 22.5 MILLIGRAM, Q 3 MONTH
     Route: 058
     Dates: start: 20230501
  5. RADIATION THERAPY [Suspect]
     Active Substance: RADIATION THERAPY
     Indication: Product used for unknown indication
     Dosage: UNK
     Dates: start: 20220831, end: 20221012

REACTIONS (20)
  - Pain [Recovering/Resolving]
  - Haematochezia [Unknown]
  - Cachexia [Not Recovered/Not Resolved]
  - Ulcer [Unknown]
  - Fall [Unknown]
  - Pallor [Unknown]
  - Constipation [Unknown]
  - Anal incontinence [Unknown]
  - Gastrointestinal disorder [Unknown]
  - Dyspnoea [Unknown]
  - Blood cholesterol increased [Unknown]
  - Injection site pain [Recovered/Resolved]
  - Hot flush [Unknown]
  - Hyperhidrosis [Unknown]
  - Libido decreased [Unknown]
  - Pollakiuria [Unknown]
  - Asthenia [Unknown]
  - Injection site mass [Not Recovered/Not Resolved]
  - Weight increased [Unknown]
  - Fatigue [Unknown]

NARRATIVE: CASE EVENT DATE: 20221111
